FAERS Safety Report 15981278 (Version 2)
Quarter: 2019Q2

REPORT INFORMATION
  Report Type: Spontaneous
  Country: US (occurrence: US)
  Receive Date: 20190219
  Receipt Date: 20190402
  Transmission Date: 20190711
  Serious: Yes (Other)
  Sender: FDA-Public Use
  Company Number: US-ASTRAZENECA-2019SE25070

PATIENT
  Sex: Male
  Weight: 72.6 kg

DRUGS (2)
  1. BREO ELLIPTA [Concomitant]
     Active Substance: FLUTICASONE FUROATE\VILANTEROL TRIFENATATE
     Indication: CHRONIC OBSTRUCTIVE PULMONARY DISEASE
     Route: 055
  2. TUDORZA PRESSAIR [Suspect]
     Active Substance: ACLIDINIUM BROMIDE
     Indication: CHRONIC OBSTRUCTIVE PULMONARY DISEASE
     Dosage: 400 MCG, 1 PUFF EVERY NIGHT
     Route: 055

REACTIONS (5)
  - Off label use [Not Recovered/Not Resolved]
  - Bladder cancer [Unknown]
  - Product dose omission [Unknown]
  - Device malfunction [Unknown]
  - Lung disorder [Unknown]
